FAERS Safety Report 22752351 (Version 5)
Quarter: 2024Q1

REPORT INFORMATION
  Report Type: Report from Study
  Country: JP (occurrence: JP)
  Receive Date: 20230726
  Receipt Date: 20240220
  Transmission Date: 20240410
  Serious: Yes (Death)
  Sender: FDA-Public Use
  Company Number: JP-JNJFOC-20230754541

PATIENT
  Age: 53 Year
  Sex: Female

DRUGS (7)
  1. BOSENTAN [Suspect]
     Active Substance: BOSENTAN
     Indication: Skin ulcer
     Dosage: IN THE MORNING AND EVENING
     Route: 048
     Dates: start: 20200319, end: 2020
  2. BOSENTAN [Suspect]
     Active Substance: BOSENTAN
     Route: 048
     Dates: start: 20201209, end: 20230712
  3. CELLCEPT [Concomitant]
     Active Substance: MYCOPHENOLATE MOFETIL
     Indication: Interstitial lung disease
     Route: 048
     Dates: start: 20200323
  4. VONOPRAZAN FUMARATE [Concomitant]
     Active Substance: VONOPRAZAN FUMARATE
     Indication: Gastrooesophageal reflux disease
     Dosage: 20-10MG
     Route: 048
     Dates: start: 20200320
  5. MOSAPRIDE CITRATE DIHYDRATE [Concomitant]
     Active Substance: MOSAPRIDE CITRATE DIHYDRATE
     Indication: Gastrooesophageal reflux disease
     Route: 048
     Dates: start: 20200324
  6. ALLOID G [Concomitant]
     Active Substance: SODIUM ALGINATE
     Indication: Gastrooesophageal reflux disease
     Route: 048
     Dates: start: 20200319
  7. SULFAMETHOXAZOLE\TRIMETHOPRIM [Concomitant]
     Active Substance: SULFAMETHOXAZOLE\TRIMETHOPRIM
     Indication: Interstitial lung disease
     Route: 048
     Dates: start: 20200320

REACTIONS (2)
  - Myocarditis [Fatal]
  - COVID-19 [Fatal]

NARRATIVE: CASE EVENT DATE: 20230708
